FAERS Safety Report 5219163-3 (Version None)
Quarter: 2007Q1

REPORT INFORMATION
  Report Type: 
  Country: None (occurrence: None)
  Receive Date: 20061121
  Receipt Date: 20060920
  Transmission Date: 20070707
  Serious: No
  Sender: FDA-Public Use
  Company Number: TPA2006A01625

PATIENT
  Age: 68 Year
  Sex: Male
  Weight: 81.6475 kg

DRUGS (6)
  1. ROZEREM [Suspect]
     Indication: INSOMNIA
     Dosage: 8 MG, HS, PER ORAL
     Route: 048
     Dates: start: 20060912
  2. KLONOPIN [Suspect]
     Indication: INSOMNIA
     Dosage: 1 MG, HS, PER ORAL
     Route: 048
     Dates: start: 20030101
  3. ATENOLOL [Concomitant]
  4. LIPITOR [Concomitant]
  5. ASPIRIN [Concomitant]
  6. GLUCOSAMINE/CHONDROITIN (GLUCOSAMINE, CHONDROITIN SULFATE) [Concomitant]

REACTIONS (4)
  - CHILLS [None]
  - DRUG INEFFECTIVE [None]
  - DRY MOUTH [None]
  - INITIAL INSOMNIA [None]
